FAERS Safety Report 21227601 (Version 2)
Quarter: 2022Q3

REPORT INFORMATION
  Report Type: Spontaneous
  Country: US (occurrence: US)
  Receive Date: 20220818
  Receipt Date: 20220916
  Transmission Date: 20221026
  Serious: Yes (Other)
  Sender: FDA-Public Use
  Company Number: US-BAYER-2022A115297

PATIENT
  Age: 22 Year
  Sex: Female

DRUGS (1)
  1. MIRENA [Suspect]
     Active Substance: LEVONORGESTREL
     Indication: Contraception
     Dosage: 20?G/DAY
     Route: 015
     Dates: start: 20210409

REACTIONS (7)
  - Post procedural haemorrhage [None]
  - Product sterility issue [Recovered/Resolved]
  - Bacterial vaginosis [None]
  - Vaginal discharge [None]
  - Procedural pain [None]
  - Device expulsion [Recovered/Resolved]
  - Menstruation irregular [None]

NARRATIVE: CASE EVENT DATE: 20220808
